FAERS Safety Report 5390514-2 (Version None)
Quarter: 2007Q3

REPORT INFORMATION
  Report Type: 
  Country: None (occurrence: None)
  Receive Date: 20070718
  Receipt Date: 20060614
  Transmission Date: 20080115
  Serious: No
  Sender: FDA-Public Use
  Company Number: US-KINGPHARMUSA00001-K200600782

PATIENT

DRUGS (2)
  1. LEVOXYL [Suspect]
     Dosage: 75 MCG, UNK
     Route: 048
  2. LEVOXYL [Suspect]
     Dosage: 50 MCG, BID
     Route: 048

REACTIONS (3)
  - HYPERSENSITIVITY [None]
  - RESPIRATORY TRACT CONGESTION [None]
  - THROAT TIGHTNESS [None]
